FAERS Safety Report 8208900-1 (Version None)
Quarter: 2012Q1

REPORT INFORMATION
  Report Type: 
  Country: None (occurrence: None)
  Receive Date: 20120314
  Receipt Date: 20120307
  Transmission Date: 20120608
  Serious: No
  Sender: FDA-Public Use
  Company Number: US-PFIZER INC-2012061925

PATIENT
  Sex: Female

DRUGS (4)
  1. CRESTOR [Concomitant]
     Dosage: UNK
  2. LOVASTATIN [Concomitant]
     Dosage: UNK
  3. TRIAMTERENE AND HYDROCHLOROTHIAZIDE [Concomitant]
     Dosage: UNK
  4. LATANOPROST [Suspect]
     Dosage: 1 DROP (GTT) IN EACH EYE (OU) AT BEDTIME (QHS)
     Route: 047

REACTIONS (4)
  - EYE IRRITATION [None]
  - FOREIGN BODY SENSATION IN EYES [None]
  - OCULAR HYPERAEMIA [None]
  - EYE PRURITUS [None]
